FAERS Safety Report 9505991 (Version 1)
Quarter: 2013Q1

REPORT INFORMATION
  Report Type: Spontaneous
  Country: US (occurrence: None)
  Receive Date: 20130305
  Receipt Date: 20130305
  Transmission Date: 20140127
  Serious: Yes (Other)
  Sender: FDA-Public Use
  Company Number: 163-21880-11081244

PATIENT
  Age: 60 Year
  Sex: Male
  Weight: 108.86 kg

DRUGS (10)
  1. REVLIMID (LENALIDOMIDE) [Suspect]
     Indication: PLASMA CELL MYELOMA
     Route: 048
     Dates: start: 201006
  2. ACTOS (PIOGLITAZONE) [Concomitant]
  3. GLYBURIDE (GLIBENCLAMIDE) [Concomitant]
  4. METFORMIN (METFORMIN) [Concomitant]
  5. SIMVASTATIN (SIMVASTATIN) [Concomitant]
  6. ZOFRAN (ONDANSETRON HYDROCHLORIDE) [Concomitant]
  7. ACETAMINOPHEN\HYDROCODONE BITARTRATE [Concomitant]
  8. LASIX (FUROSEMIDE) [Concomitant]
  9. KLOR-CON (POTASSIUM CHLORIDE) [Concomitant]
  10. SKELAXIN (METAXALONE) [Concomitant]

REACTIONS (1)
  - Full blood count decreased [None]
